FAERS Safety Report 24948549 (Version 1)
Quarter: 2025Q1

REPORT INFORMATION
  Report Type: Spontaneous
  Country: US (occurrence: None)
  Receive Date: 20250207
  Receipt Date: 20250207
  Transmission Date: 20250409
  Serious: Yes (Death)
  Sender: FDA-CTU
  Company Number: None

PATIENT
  Age: 67 Year
  Sex: Female
  Weight: 38.56 kg

DRUGS (3)
  1. WINREVAIR [Suspect]
     Active Substance: SOTATERCEPT-CSRK
     Route: 058
     Dates: start: 202408, end: 20250112
  2. BOSENTAN [Concomitant]
     Active Substance: BOSENTAN
  3. BOSENTAN [Concomitant]
     Active Substance: BOSENTAN

REACTIONS (4)
  - Vomiting [None]
  - Lethargy [None]
  - Shock [None]
  - Respiratory failure [None]

NARRATIVE: CASE EVENT DATE: 20250112
